FAERS Safety Report 4567828-9 (Version None)
Quarter: 2005Q1

REPORT INFORMATION
  Report Type: 
  Country: None (occurrence: None)
  Receive Date: 20050202
  Receipt Date: 20041014
  Transmission Date: 20050727
  Serious: No
  Sender: FDA-Public Use
  Company Number: US-GLAXOSMITHKLINE-A0530325A

PATIENT
  Age: 52 Year
  Sex: Male

DRUGS (2)
  1. AVANDAMET [Suspect]
  2. AMARYL [Suspect]
     Indication: DRUG USE FOR UNKNOWN INDICATION

REACTIONS (4)
  - BACK PAIN [None]
  - COLD SWEAT [None]
  - DRUG INTERACTION [None]
  - FEELING COLD [None]
